FAERS Safety Report 5317389-1 (Version None)
Quarter: 2007Q2

REPORT INFORMATION
  Report Type: 
  Country: None (occurrence: None)
  Receive Date: 20070504
  Receipt Date: 20070426
  Transmission Date: 20071010
  Serious: Yes (Hospitalization)
  Sender: FDA-Public Use
  Company Number: JP-ABBOTT-07P-087-0366348-00

PATIENT
  Age: 53 Year
  Sex: Female
  Weight: 58 kg

DRUGS (11)
  1. CLARITHROMYCIN [Suspect]
     Indication: BRONCHITIS
     Route: 048
     Dates: start: 20060420, end: 20060424
  2. CLARITHROMYCIN [Suspect]
     Indication: PNEUMONIA
  3. AZELASTINE HCL [Suspect]
     Indication: RHINITIS ALLERGIC
     Route: 048
     Dates: start: 20060308, end: 20060415
  4. MEQUITAZINE [Suspect]
     Indication: RHINITIS ALLERGIC
     Route: 048
     Dates: start: 20060308, end: 20060415
  5. AMOXICILLIN HYDRATE [Suspect]
     Indication: TONSILLITIS
     Route: 048
     Dates: start: 20060417, end: 20060420
  6. MEFENAMIC ACID [Suspect]
     Indication: TONSILLITIS
     Route: 048
     Dates: start: 20060417, end: 20060420
  7. LYSOZYME HYDROCHLORIDE [Concomitant]
     Indication: TONSILLITIS
     Route: 048
     Dates: start: 20060417, end: 20060420
  8. L-CARBOCISTEINE [Concomitant]
     Indication: BRONCHITIS
     Route: 048
     Dates: start: 20060420, end: 20060424
  9. TIPEPIDINE HIBENZATE [Concomitant]
     Indication: BRONCHITIS
     Route: 048
     Dates: start: 20060420, end: 20060424
  10. AZULENE SULFONATE SODIUM/L-GLUTAMINE [Concomitant]
     Indication: BRONCHITIS
     Route: 048
     Dates: start: 20060420, end: 20060424
  11. ESTROGENS CONJUGATED [Concomitant]
     Indication: MENOPAUSAL SYMPTOMS
     Route: 048
     Dates: start: 20060401, end: 20060501

REACTIONS (1)
  - PNEUMONIA [None]
